FAERS Safety Report 4853220-6 (Version None)
Quarter: 2005Q4

REPORT INFORMATION
  Report Type: 
  Country: None (occurrence: None)
  Receive Date: 20051213
  Receipt Date: 20051213
  Transmission Date: 20060501
  Serious: Yes (Hospitalization)
  Sender: FDA-Public Use
  Company Number: None

PATIENT
  Age: 66 Year
  Sex: Male
  Weight: 94.8 kg

DRUGS (4)
  1. IMATINIB 400 MG ID [Suspect]
     Dosage: 400 MG 1 D PO
     Route: 048
     Dates: start: 20051118, end: 20051207
  2. DOCETAXEL [Suspect]
     Dosage: 48 MG D1 + D8 IV
     Route: 042
     Dates: start: 20051118, end: 20051125
  3. TEQUIN [Concomitant]
  4. OXYGEN [Concomitant]

REACTIONS (1)
  - DYSPNOEA [None]
